FAERS Safety Report 8809550 (Version 1)
Quarter: 2012Q4

REPORT INFORMATION
  Report Type: 
  Country: DE (occurrence: DE)
  Receive Date: 20120926
  Receipt Date: 20120926
  Transmission Date: 20130627
  Serious: Yes (Hospitalization)
  Sender: FDA-Public Use
  Company Number: DE-PFIZER INC-2012233571

PATIENT
  Age: 55 Year
  Sex: Female
  Weight: 74.6 kg

DRUGS (10)
  1. GENOTROPIN [Suspect]
     Indication: HYPOPITUITARISM
     Dosage: 0.2 mg, 1x/day (7inj/wk)
     Route: 058
     Dates: start: 20051115
  2. DESMOPRESSIN [Concomitant]
     Indication: BLOOD ANTIDIURETIC HORMONE DECREASED
     Dosage: UNK
     Dates: start: 19980708
  3. POTASSIUM IODIDE [Concomitant]
     Dosage: UNK
     Dates: start: 20001201
  4. CANDESARTAN [Concomitant]
     Indication: ESSENTIAL HYPERTENSION
     Dosage: UNK
     Dates: start: 20010716
  5. IDEOS [Concomitant]
     Indication: OSTEOPOROSIS
     Dosage: UNK
     Dates: start: 20041217
  6. TESTOSTERONE [Concomitant]
     Indication: BLOOD LUTEINISING HORMONE DECREASED
     Dosage: UNK
     Dates: start: 20041217
  7. TESTOSTERONE [Concomitant]
     Indication: BLOOD FOLLICLE STIMULATING HORMONE DECREASED
  8. TESTOSTERONE [Concomitant]
     Indication: HYPOGONADISM
  9. HYDROCORTISONE [Concomitant]
     Indication: BLOOD CORTICOTROPHIN DECREASED
     Dosage: UNK
     Dates: start: 19980708
  10. BISOPROLOL [Concomitant]
     Indication: ESSENTIAL HYPERTENSION
     Dosage: UNK
     Dates: start: 20050510, end: 20080408

REACTIONS (1)
  - Allergy to arthropod sting [Unknown]
